FAERS Safety Report 8286527 (Version 5)
Quarter: 2013Q1

REPORT INFORMATION
  Report Type: Report from Study
  Country: BE (occurrence: BE)
  Receive Date: 20111213
  Receipt Date: 20130301
  Transmission Date: 20140127
  Serious: Yes (Other)
  Sender: FDA-Public Use
  Company Number: BE-CELGENEUS-013-C5013-11113984

PATIENT
  Age: 80 None
  Sex: Male
  Weight: 81 kg

DRUGS (8)
  1. CC-5013 [Suspect]
     Indication: MANTLE CELL LYMPHOMA
     Dosage: 25 MILLIGRAM
     Route: 048
     Dates: start: 20101012
  2. CC-5013 [Suspect]
     Dosage: 25 MILLIGRAM
     Route: 048
     Dates: start: 20111118
  3. ELTHYRONE [Concomitant]
     Indication: HYPOTHYROIDISM
     Dosage: 50 MICROGRAM
     Route: 048
     Dates: start: 200908
  4. ALLOPURINOL [Concomitant]
     Indication: PRODUCT USED FOR UNKNOWN INDICATION
     Dosage: 300 MILLIGRAM
     Route: 048
     Dates: start: 20101012, end: 20110427
  5. ASAFLOW [Concomitant]
     Indication: PRODUCT USED FOR UNKNOWN INDICATION
     Dosage: 80 MILLIGRAM
     Route: 048
     Dates: start: 20101012
  6. TEDIVAX [Concomitant]
     Indication: PROPHYLAXIS
     Route: 030
     Dates: start: 20110222, end: 20110222
  7. PARACETAMOL [Concomitant]
     Indication: NASOPHARYNGITIS
     Route: 048
     Dates: start: 20111028, end: 20111103
  8. PARACETAMOL [Concomitant]
     Indication: PAIN
     Route: 048
     Dates: start: 20120104, end: 20120110

REACTIONS (3)
  - Basal cell carcinoma [Recovered/Resolved]
  - Squamous cell carcinoma of skin [Recovered/Resolved]
  - Basal cell carcinoma [Recovered/Resolved]
